FAERS Safety Report 10617460 (Version 1)
Quarter: 2014Q4

REPORT INFORMATION
  Report Type: Spontaneous
  Country: US (occurrence: US)
  Receive Date: 20141201
  Receipt Date: 20141201
  Transmission Date: 20150529
  Serious: Yes (Death)
  Sender: FDA-Public Use
  Company Number: PHHY2014US151633

PATIENT
  Age: 17 Year
  Sex: Male

DRUGS (4)
  1. AMPHOTERICIN B. [Suspect]
     Active Substance: AMPHOTERICIN B
     Indication: PYTHIUM INSIDIOSUM INFECTION
     Route: 065
  2. INTERFERON GAMMA NOS [Suspect]
     Active Substance: INTERFERON GAMMA
     Indication: PYTHIUM INSIDIOSUM INFECTION
     Route: 058
  3. VORICONAZOLE. [Suspect]
     Active Substance: VORICONAZOLE
     Indication: PYTHIUM INSIDIOSUM INFECTION
     Route: 065
  4. TERBINAFINE [Suspect]
     Active Substance: TERBINAFINE
     Indication: PYTHIUM INSIDIOSUM INFECTION
     Route: 065

REACTIONS (1)
  - Death [Fatal]
